FAERS Safety Report 12224990 (Version 1)
Quarter: 2016Q1

REPORT INFORMATION
  Report Type: Report from Study
  Country: BR (occurrence: BR)
  Receive Date: 20160331
  Receipt Date: 20160331
  Transmission Date: 20160526
  Serious: Yes (Other)
  Sender: FDA-Public Use
  Company Number: BR-ABBVIE-16K-020-1593277-00

PATIENT
  Age: 24 Year
  Sex: Female
  Weight: 53 kg

DRUGS (3)
  1. HUMIRA [Suspect]
     Active Substance: ADALIMUMAB
     Dosage: LOADING DOSE WEEK 2
     Route: 058
     Dates: start: 201412, end: 201412
  2. HUMIRA [Suspect]
     Active Substance: ADALIMUMAB
     Route: 058
     Dates: end: 201412
  3. HUMIRA [Suspect]
     Active Substance: ADALIMUMAB
     Indication: COLITIS ULCERATIVE
     Dosage: LOADING DOSE WEEK 0
     Route: 058
     Dates: start: 201412, end: 201412

REACTIONS (2)
  - Mental disorder [Recovered/Resolved]
  - Colectomy total [Recovered/Resolved]

NARRATIVE: CASE EVENT DATE: 20150313
